FAERS Safety Report 5831696-5 (Version None)
Quarter: 2008Q3

REPORT INFORMATION
  Report Type: 
  Country: None (occurrence: None)
  Receive Date: 20080729
  Receipt Date: 20080715
  Transmission Date: 20090109
  Serious: Yes (Other)
  Sender: FDA-Public Use
  Company Number: 8034833

PATIENT
  Age: 83 Year
  Sex: Male

DRUGS (1)
  1. KEPPRA [Suspect]
     Indication: EPILEPSY
     Dosage: 3000 MG 2/D PO
     Route: 048
     Dates: start: 20071101

REACTIONS (2)
  - ATAXIA [None]
  - URINARY RETENTION [None]
